FAERS Safety Report 17057085 (Version 1)
Quarter: 2019Q4

REPORT INFORMATION
  Report Type: Other
  Country: GB (occurrence: GB)
  Receive Date: 20191121
  Receipt Date: 20191121
  Transmission Date: 20200122
  Serious: Yes (Congenital Anomaly, Other)
  Sender: FDA-Public Use
  Company Number: GB-EMCURE PHARMACEUTICALS LTD-2009-EPL-0004

PATIENT
  Sex: Female
  Weight: 3 kg

DRUGS (2)
  1. METFORMIN [Suspect]
     Active Substance: METFORMIN HYDROCHLORIDE
     Indication: POLYCYSTIC OVARIES
     Route: 064
  2. CLOMID [Concomitant]
     Active Substance: CLOMIPHENE CITRATE
     Dosage: UNK

REACTIONS (2)
  - Foetal exposure during pregnancy [Unknown]
  - Cleft lip [Unknown]
